FAERS Safety Report 22896914 (Version 3)
Quarter: 2023Q4

REPORT INFORMATION
  Report Type: Report from Study
  Country: US (occurrence: US)
  Receive Date: 20230902
  Receipt Date: 20231006
  Transmission Date: 20240110
  Serious: No
  Sender: FDA-Public Use
  Company Number: US-002147023-NVSC2023US190295

PATIENT
  Sex: Male

DRUGS (1)
  1. KESIMPTA [Suspect]
     Active Substance: OFATUMUMAB
     Indication: Multiple sclerosis
     Dosage: 20 MG, QMO (EVERY 28 DAYS)
     Route: 058
     Dates: start: 20230323

REACTIONS (3)
  - Fall [Unknown]
  - Lower limb fracture [Unknown]
  - Product dose omission issue [Unknown]
